FAERS Safety Report 24875516 (Version 1)
Quarter: 2025Q1

REPORT INFORMATION
  Report Type: Spontaneous
  Country: US (occurrence: US)
  Receive Date: 20250122
  Receipt Date: 20250122
  Transmission Date: 20250409
  Serious: Yes (Hospitalization, Other)
  Sender: Unknown Manufacturer
  Company Number: US-CYCLE PHARMACEUTICALS LTD-2025-CYC-000002

PATIENT

DRUGS (2)
  1. TASCENSO ODT [Suspect]
     Active Substance: FINGOLIMOD LAURYL SULFATE
     Indication: Product used for unknown indication
     Route: 065
     Dates: start: 202409, end: 20250109
  2. TASCENSO ODT [Suspect]
     Active Substance: FINGOLIMOD LAURYL SULFATE
     Route: 065
     Dates: start: 20250111

REACTIONS (1)
  - Mastectomy [Recovered/Resolved with Sequelae]

NARRATIVE: CASE EVENT DATE: 20250101
